FAERS Safety Report 4372446-1 (Version None)
Quarter: 2004Q2

REPORT INFORMATION
  Report Type: 
  Country: None (occurrence: None)
  Receive Date: 20040603
  Receipt Date: 20040520
  Transmission Date: 20050107
  Serious: Yes (Death)
  Sender: FDA-Public Use
  Company Number: 8029

PATIENT
  Age: 31 Year
  Sex: Female

DRUGS (1)
  1. PACLITAXEL [Suspect]
     Indication: OVARIAN EPITHELIAL CANCER
     Dosage: 150 MG ONCE
     Route: 042
     Dates: start: 20020709

REACTIONS (5)
  - BLOOD SODIUM DECREASED [None]
  - CARDIOGENIC SHOCK [None]
  - HYPOCHROMIC ANAEMIA [None]
  - MYOCARDIAL INFARCTION [None]
  - PROTEIN TOTAL INCREASED [None]
